FAERS Safety Report 12633612 (Version 1)
Quarter: 2016Q3

REPORT INFORMATION
  Report Type: Spontaneous
  Country: US (occurrence: None)
  Receive Date: 20160808
  Receipt Date: 20160808
  Transmission Date: 20161109
  Serious: Yes (Other)
  Sender: FDA-Public Use
  Company Number: None

PATIENT
  Age: 49 Year
  Sex: Female
  Weight: 113.4 kg

DRUGS (1)
  1. OMEPRAZOLEDR, SUB. PRILOSECDR, 40 MG [Suspect]
     Active Substance: OMEPRAZOLE
     Indication: GASTROOESOPHAGEAL REFLUX DISEASE
     Route: 048
     Dates: start: 20150802, end: 20150804

REACTIONS (5)
  - Pruritus [None]
  - Chest pain [None]
  - Chest discomfort [None]
  - Rash [None]
  - Wheezing [None]

NARRATIVE: CASE EVENT DATE: 20160802
